FAERS Safety Report 5755693-3 (Version None)
Quarter: 2008Q2

REPORT INFORMATION
  Report Type: 
  Country: None (occurrence: None)
  Receive Date: 20080602
  Receipt Date: 20080522
  Transmission Date: 20081010
  Serious: Yes (Other)
  Sender: FDA-Public Use
  Company Number: US-ROCHE-566889

PATIENT
  Age: 50 Year
  Sex: Female

DRUGS (1)
  1. BONIVA [Suspect]
     Indication: OSTEOPOROSIS
     Dosage: REPORTED TAHT PATIENT WAS SUPPOSED TO RECEIVE A TOTAL OF 3MG.
     Route: 042

REACTIONS (2)
  - DIZZINESS [None]
  - HYPOTENSION [None]
